FAERS Safety Report 16171399 (Version 9)
Quarter: 2023Q1

REPORT INFORMATION
  Report Type: Report from Study
  Country: JP (occurrence: JP)
  Receive Date: 20190408
  Receipt Date: 20230324
  Transmission Date: 20230418
  Serious: Yes (Death, Other)
  Sender: FDA-Public Use
  Company Number: JP-SHIRE-JP201911055AA

PATIENT
  Age: 2 Year
  Sex: Female
  Weight: 12.8 kg

DRUGS (43)
  1. VELAGLUCERASE ALFA [Suspect]
     Active Substance: VELAGLUCERASE ALFA
     Indication: Gaucher^s disease type II
     Dosage: 80-112 IU/KG, 1X/2WKS
     Route: 042
     Dates: start: 20161013, end: 20190315
  2. AMBROXOL HYDROCHLORIDE [Concomitant]
     Active Substance: AMBROXOL HYDROCHLORIDE
     Indication: Gaucher^s disease type II
     Dosage: 36 MILLILITER
     Route: 048
     Dates: end: 20190330
  3. PRANLUKAST [Concomitant]
     Active Substance: PRANLUKAST
     Indication: Product used for unknown indication
     Dosage: 90 MILLIGRAM
     Route: 048
     Dates: end: 20190330
  4. LEVETIRACETAM [Concomitant]
     Active Substance: LEVETIRACETAM
     Indication: Product used for unknown indication
     Dosage: 800 MILLIGRAM
     Route: 048
     Dates: start: 20151008
  5. LEVETIRACETAM [Concomitant]
     Active Substance: LEVETIRACETAM
     Dosage: 1000 MILLIGRAM
     Route: 048
     Dates: start: 20170223
  6. LEVETIRACETAM [Concomitant]
     Active Substance: LEVETIRACETAM
     Dosage: 1600 MILLIGRAM
     Route: 048
     Dates: start: 20170323, end: 20190330
  7. LAMICTAL [Concomitant]
     Active Substance: LAMOTRIGINE
     Indication: Product used for unknown indication
     Dosage: 20 MILLIGRAM
     Route: 048
     Dates: start: 20161201
  8. PHENOBARBITAL [Concomitant]
     Active Substance: PHENOBARBITAL
     Indication: Product used for unknown indication
     Dosage: 150 MILLIGRAM
     Route: 048
     Dates: start: 20160121, end: 20170302
  9. PHENOBARBITAL [Concomitant]
     Active Substance: PHENOBARBITAL
     Dosage: 180 MILLIGRAM
     Route: 048
     Dates: start: 20170302, end: 20170415
  10. PHENOBARBITAL [Concomitant]
     Active Substance: PHENOBARBITAL
     Dosage: 200 MILLIGRAM
     Route: 048
     Dates: start: 20170416, end: 20170522
  11. PHENOBARBITAL [Concomitant]
     Active Substance: PHENOBARBITAL
     Dosage: 220 MILLIGRAM
     Route: 048
     Dates: start: 20170523, end: 20170531
  12. PHENOBARBITAL [Concomitant]
     Active Substance: PHENOBARBITAL
     Dosage: 260 MILLIGRAM
     Route: 048
     Dates: start: 20170601, end: 20170607
  13. PHENOBARBITAL [Concomitant]
     Active Substance: PHENOBARBITAL
     Dosage: 240 MILLIGRAM
     Route: 048
     Dates: start: 20170608, end: 20170621
  14. PHENOBARBITAL [Concomitant]
     Active Substance: PHENOBARBITAL
     Dosage: 250 MILLIGRAM
     Route: 048
     Dates: start: 20170622, end: 20170628
  15. PHENOBARBITAL [Concomitant]
     Active Substance: PHENOBARBITAL
     Dosage: 260 MILLIGRAM
     Route: 048
     Dates: start: 20170629, end: 20170705
  16. PHENOBARBITAL [Concomitant]
     Active Substance: PHENOBARBITAL
     Dosage: 280 MILLIGRAM
     Route: 048
     Dates: start: 20170706, end: 20170814
  17. PHENOBARBITAL [Concomitant]
     Active Substance: PHENOBARBITAL
     Dosage: 300 MILLIGRAM
     Route: 048
     Dates: start: 20170815, end: 20190330
  18. MYSTAN [Concomitant]
     Active Substance: CLOBAZAM
     Indication: Product used for unknown indication
     Dosage: 10 MILLIGRAM
     Route: 048
     Dates: start: 20160721
  19. MYSTAN [Concomitant]
     Active Substance: CLOBAZAM
     Dosage: 16 MILLIGRAM
     Route: 048
     Dates: start: 20170330, end: 20190330
  20. DIAZEPAM [Concomitant]
     Active Substance: DIAZEPAM
     Indication: Product used for unknown indication
     Dosage: 12 MILLIGRAM
     Route: 048
     Dates: start: 20160815, end: 20170112
  21. DIAZEPAM [Concomitant]
     Active Substance: DIAZEPAM
     Dosage: 16 MILLIGRAM
     Route: 048
     Dates: start: 20170112, end: 20190330
  22. ZONISAMIDE [Concomitant]
     Active Substance: ZONISAMIDE
     Indication: Product used for unknown indication
     Dosage: 80 MILLIGRAM
     Route: 048
     Dates: start: 20160915, end: 20170105
  23. ZONISAMIDE [Concomitant]
     Active Substance: ZONISAMIDE
     Dosage: 140 MILLIGRAM
     Route: 048
     Dates: start: 20170105, end: 20190330
  24. MOSAPRIDE CITRATE [Concomitant]
     Active Substance: MOSAPRIDE CITRATE
     Indication: Gastrooesophageal reflux prophylaxis
     Dosage: 4 MILLIGRAM
     Route: 048
     Dates: end: 20190330
  25. VALPROATE SODIUM [Concomitant]
     Active Substance: VALPROATE SODIUM
     Indication: Product used for unknown indication
     Dosage: 18 MILLILITER
     Route: 048
     Dates: end: 20170323
  26. MYOCALM [PIRACETAM] [Concomitant]
     Indication: Product used for unknown indication
     Dosage: 24 MILLILITER
     Route: 048
     Dates: start: 20160901, end: 20170309
  27. MYOCALM [PIRACETAM] [Concomitant]
     Dosage: 30 MILLILITER
     Route: 048
     Dates: end: 20190330
  28. LEVOCARNITINE HYDROCHLORIDE [Concomitant]
     Active Substance: LEVOCARNITINE HYDROCHLORIDE
     Indication: Prophylaxis
     Dosage: 6 MILLILITER
     Route: 048
     Dates: end: 20190330
  29. ALFAROL [Concomitant]
     Active Substance: ALFACALCIDOL
     Indication: Product used for unknown indication
     Dosage: 1 MILLILITER
     Route: 048
     Dates: end: 20190330
  30. TEPRENONE [Concomitant]
     Active Substance: TEPRENONE
     Indication: Prophylaxis
     Dosage: 0.45 GRAM
     Dates: end: 20190330
  31. LACB-R [Concomitant]
     Indication: Product used for unknown indication
     Dosage: 1.2 GRAM
     Route: 048
     Dates: end: 20170823
  32. LACB-R [Concomitant]
     Dosage: 1.8 GRAM
     Route: 048
     Dates: start: 20170824, end: 20190330
  33. INCREMIN C IRON [Concomitant]
     Indication: Product used for unknown indication
     Dosage: 6 MILLILITER
     Route: 048
     Dates: end: 20190330
  34. RABEPRAZOLE SODIUM [Concomitant]
     Active Substance: RABEPRAZOLE SODIUM
     Indication: Prophylaxis
     Dosage: 5 MILLIGRAM
     Route: 048
     Dates: end: 20170422
  35. LEVOTHYROXINE SODIUM [Concomitant]
     Active Substance: LEVOTHYROXINE SODIUM
     Indication: Product used for unknown indication
     Dosage: 50 MICROGRAM
     Route: 048
     Dates: end: 20180710
  36. LEVOTHYROXINE SODIUM [Concomitant]
     Active Substance: LEVOTHYROXINE SODIUM
     Dosage: 30 MICROGRAM
     Route: 048
     Dates: start: 20180711, end: 20190330
  37. SULFAMETHOXAZOLE\TRIMETHOPRIM [Concomitant]
     Active Substance: SULFAMETHOXAZOLE\TRIMETHOPRIM
     Indication: Prophylaxis
     Dosage: 0.3 GRAM
     Route: 048
     Dates: end: 20190330
  38. FENTANYL [Concomitant]
     Active Substance: FENTANYL
     Indication: Product used for unknown indication
     Dosage: 2.1 MILLIGRAM
     Route: 061
     Dates: start: 20160201, end: 20190330
  39. ROZEREM [Concomitant]
     Active Substance: RAMELTEON
     Indication: Product used for unknown indication
     Dosage: 4 MILLIGRAM
     Route: 048
     Dates: start: 20151205, end: 20190330
  40. TOPIRAMATE [Concomitant]
     Active Substance: TOPIRAMATE
     Indication: Gaucher^s disease type II
     Dosage: 20 MILLIGRAM
     Route: 048
     Dates: start: 20170318, end: 20170419
  41. TOPIRAMATE [Concomitant]
     Active Substance: TOPIRAMATE
     Dosage: 40 MILLIGRAM
     Route: 048
     Dates: start: 20170420, end: 20190330
  42. VONOPRAZAN FUMARATE [Concomitant]
     Active Substance: VONOPRAZAN FUMARATE
     Indication: Prophylaxis
     Dosage: 10 MILLIGRAM
     Route: 048
     Dates: start: 20170423, end: 20170517
  43. VONOPRAZAN FUMARATE [Concomitant]
     Active Substance: VONOPRAZAN FUMARATE
     Dosage: 20 MILLIGRAM
     Route: 048
     Dates: start: 20170518, end: 20190109

REACTIONS (18)
  - Acute kidney injury [Fatal]
  - Pneumonia [Not Recovered/Not Resolved]
  - Multiple organ dysfunction syndrome [Unknown]
  - Gastric haemorrhage [Not Recovered/Not Resolved]
  - Azotaemia [Recovered/Resolved]
  - Coagulopathy [Not Recovered/Not Resolved]
  - Aspartate aminotransferase increased [Recovered/Resolved]
  - Alanine aminotransferase increased [Recovered/Resolved]
  - Hypoproteinaemia [Recovered/Resolved]
  - Hypernatraemia [Recovered/Resolved]
  - Hyperchloraemia [Recovered/Resolved]
  - Myoclonus [Not Recovered/Not Resolved]
  - Aspartate aminotransferase increased [Not Recovered/Not Resolved]
  - Alanine aminotransferase increased [Not Recovered/Not Resolved]
  - Hyperchloraemia [Not Recovered/Not Resolved]
  - Hypernatraemia [Not Recovered/Not Resolved]
  - Hypoproteinaemia [Recovered/Resolved]
  - Urinary tract infection [Recovered/Resolved]

NARRATIVE: CASE EVENT DATE: 20161211
